FAERS Safety Report 6031383-7 (Version None)
Quarter: 2008Q4

REPORT INFORMATION
  Report Type: 
  Country: None (occurrence: None)
  Receive Date: 20081222
  Receipt Date: 20080904
  Transmission Date: 20090506
  Serious: No
  Sender: FDA-Public Use
  Company Number: US-WYE-H05925008

PATIENT
  Age: 75 Year
  Sex: Female
  Weight: 95.34 kg

DRUGS (5)
  1. PRISTIQ [Suspect]
     Indication: DEPRESSION
     Dosage: 50 MG 1X PER 1 DAY, ORAL
     Route: 048
     Dates: start: 20080827
  2. SYNTHROID [Concomitant]
  3. CARVEDILOL [Concomitant]
  4. ZOCOR [Concomitant]
  5. AMBIEN [Concomitant]

REACTIONS (6)
  - ANOREXIA [None]
  - CONSTIPATION [None]
  - DIZZINESS [None]
  - DRY MOUTH [None]
  - FATIGUE [None]
  - HYPERHIDROSIS [None]
